FAERS Safety Report 16653010 (Version 3)
Quarter: 2022Q1

REPORT INFORMATION
  Report Type: Spontaneous
  Country: US (occurrence: US)
  Receive Date: 20190731
  Receipt Date: 20220103
  Transmission Date: 20220423
  Serious: No
  Sender: FDA-Public Use
  Company Number: US-TAKEDA-2019TUS045645

PATIENT
  Age: 63 Year
  Sex: Female
  Weight: 51.701 kg

DRUGS (7)
  1. BRIGATINIB [Suspect]
     Active Substance: BRIGATINIB
     Indication: Brain neoplasm malignant
     Dosage: 180 MILLIGRAM, QD
     Route: 048
     Dates: start: 20190518
  2. NOVOLOG [Concomitant]
     Active Substance: INSULIN ASPART
     Route: 065
  3. LANTUS [Concomitant]
     Active Substance: INSULIN GLARGINE
     Route: 065
  4. METFORMIN HYDROCHLORIDE [Concomitant]
     Active Substance: METFORMIN HYDROCHLORIDE
     Route: 065
  5. PRAVASTATIN SODIUM [Concomitant]
     Active Substance: PRAVASTATIN SODIUM
     Route: 065
  6. LOSARTAN POTASSIUM [Concomitant]
     Active Substance: LOSARTAN POTASSIUM
     Route: 065
  7. VITAMIN D3 [Concomitant]
     Active Substance: CHOLECALCIFEROL
     Route: 065

REACTIONS (5)
  - Paraesthesia [Unknown]
  - Insomnia [Unknown]
  - Product dose omission issue [Unknown]
  - Off label use [Unknown]
  - Product distribution issue [Unknown]

NARRATIVE: CASE EVENT DATE: 20190726
